FAERS Safety Report 5760350-3 (Version None)
Quarter: 2008Q2

REPORT INFORMATION
  Report Type: 
  Country: None (occurrence: None)
  Receive Date: 20080605
  Receipt Date: 20080602
  Transmission Date: 20081010
  Serious: Yes (Hospitalization)
  Sender: FDA-Public Use
  Company Number: FR-MERCK-0806FRA00008

PATIENT
  Age: 30 Year
  Sex: Male

DRUGS (1)
  1. STROMECTOL [Suspect]
     Route: 048
     Dates: start: 20080321, end: 20080321

REACTIONS (4)
  - DERMATITIS BULLOUS [None]
  - HYPERPLASIA [None]
  - RASH PUSTULAR [None]
  - URTICARIA [None]
